FAERS Safety Report 6465832-7 (Version None)
Quarter: 2009Q4

REPORT INFORMATION
  Report Type: 
  Country: None (occurrence: None)
  Receive Date: 20091127
  Receipt Date: 20091030
  Transmission Date: 20100525
  Serious: Yes (Hospitalization, Other)
  Sender: FDA-Public Use
  Company Number: ADR49982009

PATIENT
  Age: 46 Year
  Sex: Female

DRUGS (6)
  1. CIPROFLOXACIN [Suspect]
     Indication: SALMONELLOSIS
     Dosage: 500 MG BID, ORAL
     Route: 048
     Dates: start: 20091026, end: 20091028
  2. YAZ [Concomitant]
  3. PROZAC [Concomitant]
  4. REQUIP [Concomitant]
  5. CLONAZEPAM [Concomitant]
  6. PROTONIX [Concomitant]

REACTIONS (2)
  - APHASIA [None]
  - PRODUCT SUBSTITUTION ISSUE [None]
